FAERS Safety Report 17796185 (Version 1)
Quarter: 2020Q2

REPORT INFORMATION
  Report Type: Report from Study
  Country: BE (occurrence: BE)
  Receive Date: 20200517
  Receipt Date: 20200517
  Transmission Date: 20200714
  Serious: Yes (Other)
  Sender: FDA-Public Use
  Company Number: PHHY2018BE186682

PATIENT
  Age: 46 Year
  Sex: Male

DRUGS (3)
  1. GILENYA [Suspect]
     Active Substance: FINGOLIMOD HYDROCHLORIDE
     Indication: MULTIPLE SCLEROSIS
     Dosage: 0.5 MG, QD
     Route: 048
     Dates: start: 20140204, end: 20200505
  2. MARIHUANA [Concomitant]
     Active Substance: CANNABIS SATIVA FLOWERING TOP
     Indication: PRODUCT USED FOR UNKNOWN INDICATION
     Dosage: UNK
     Route: 065
  3. GILENYA [Suspect]
     Active Substance: FINGOLIMOD HYDROCHLORIDE
     Dosage: UNK
     Route: 048
     Dates: start: 20190517

REACTIONS (15)
  - Dysaesthesia [Recovered/Resolved with Sequelae]
  - Feeling abnormal [Unknown]
  - Sensitive skin [Unknown]
  - Sensory disturbance [Not Recovered/Not Resolved]
  - Erectile dysfunction [Recovered/Resolved with Sequelae]
  - Muscle spasms [Recovered/Resolved with Sequelae]
  - Anal incontinence [Recovered/Resolved with Sequelae]
  - Abdominal discomfort [Unknown]
  - Multiple sclerosis relapse [Recovered/Resolved with Sequelae]
  - Pain in extremity [Unknown]
  - Pigmentation disorder [Recovered/Resolved with Sequelae]
  - Temperature intolerance [Unknown]
  - Nausea [Recovered/Resolved with Sequelae]
  - Hyperpathia [Recovered/Resolved with Sequelae]
  - Dystonia [Recovered/Resolved with Sequelae]

NARRATIVE: CASE EVENT DATE: 20181109
